FAERS Safety Report 8207331-8 (Version None)
Quarter: 2012Q1

REPORT INFORMATION
  Report Type: 
  Country: None (occurrence: None)
  Receive Date: 20120314
  Receipt Date: 20120102
  Transmission Date: 20120608
  Serious: No
  Sender: FDA-Public Use
  Company Number: US-GLAXOSMITHKLINE-A0959539A

PATIENT
  Age: 35 Year
  Sex: Male

DRUGS (1)
  1. NICORETTE (MINT) [Suspect]
     Indication: TOBACCO ABUSE
     Dates: start: 20120101, end: 20120102

REACTIONS (3)
  - DRUG ADMINISTRATION ERROR [None]
  - VOMITING [None]
  - MALAISE [None]
